FAERS Safety Report 8093211-8 (Version None)
Quarter: 2012Q1

REPORT INFORMATION
  Report Type: 
  Country: None (occurrence: None)
  Receive Date: 20120128
  Receipt Date: 20110913
  Transmission Date: 20120608
  Serious: No
  Sender: FDA-Public Use
  Company Number: US-ABBOTT-11P-163-0714914-00

PATIENT
  Sex: Female

DRUGS (9)
  1. LEXAPRO [Concomitant]
     Indication: DEPRESSION
  2. VITAMIN B-12 [Concomitant]
     Indication: PRODUCT USED FOR UNKNOWN INDICATION
  3. AMBIEN [Concomitant]
     Indication: SLEEP DISORDER
     Dosage: AT NIGHT AS NEEDED
  4. VITAMIN D [Concomitant]
     Indication: PRODUCT USED FOR UNKNOWN INDICATION
  5. HUMIRA [Suspect]
     Indication: CROHN'S DISEASE
     Dosage: DAY 1
     Route: 058
     Dates: start: 20110326
  6. PANTOPRAZOLE [Concomitant]
     Indication: GASTROOESOPHAGEAL REFLUX DISEASE
  7. HUMIRA [Suspect]
     Route: 058
     Dates: start: 20110301
  8. FEMHRT [Concomitant]
     Indication: HORMONE REPLACEMENT THERAPY
  9. CELEBREX [Concomitant]
     Indication: RHEUMATOID ARTHRITIS

REACTIONS (1)
  - DIARRHOEA [None]
